FAERS Safety Report 26198343 (Version 1)
Quarter: 2025Q4

REPORT INFORMATION
  Report Type: Spontaneous
  Country: CA (occurrence: CA)
  Receive Date: 20251224
  Receipt Date: 20251224
  Transmission Date: 20260117
  Serious: Yes (Death, Life-Threatening, Hospitalization, Disabling, Congenital Anomaly, Other)
  Sender: SANDOZ
  Company Number: CA-002147023-NVSC2025CA194512

PATIENT
  Age: 43 Year
  Sex: Female
  Weight: 96 kg

DRUGS (87)
  1. DICLOFENAC POTASSIUM [Suspect]
     Active Substance: DICLOFENAC POTASSIUM
     Indication: Product used for unknown indication
     Dosage: 50 MG
  2. ALENDRONIC ACID [Suspect]
     Active Substance: ALENDRONIC ACID
     Indication: Rheumatoid arthritis
     Dosage: UNK
  3. PANTOPRAZOLE [Suspect]
     Active Substance: PANTOPRAZOLE
     Indication: Product used for unknown indication
     Dosage: UNK (ANHYDROUS PANTOPRAZOLE  SODIUM )
  4. ERELZI [Suspect]
     Active Substance: ETANERCEPT-SZZS
     Indication: Rheumatoid arthritis
     Dosage: 50 MG, QW
  5. ERELZI [Suspect]
     Active Substance: ETANERCEPT-SZZS
     Dosage: UNK
  6. ERELZI [Suspect]
     Active Substance: ETANERCEPT-SZZS
     Dosage: 50 MG, QW
  7. ERELZI [Suspect]
     Active Substance: ETANERCEPT-SZZS
     Dosage: 50 MG, QW
  8. HYRIMOZ [Suspect]
     Active Substance: ADALIMUMAB-ADAZ
     Indication: Rheumatoid arthritis
     Dosage: 40 MG (SOLUTION SUBCUTANEOUS)
  9. HYRIMOZ [Suspect]
     Active Substance: ADALIMUMAB-ADAZ
  10. HYRIMOZ [Suspect]
     Active Substance: ADALIMUMAB-ADAZ
  11. HYRIMOZ [Suspect]
     Active Substance: ADALIMUMAB-ADAZ
     Indication: Rheumatoid arthritis
     Dosage: 40 MG
  12. HYRIMOZ [Suspect]
     Active Substance: ADALIMUMAB-ADAZ
     Dosage: 40 MG
  13. HYRIMOZ [Suspect]
     Active Substance: ADALIMUMAB-ADAZ
     Dosage: 40 MG, QW
  14. HYRIMOZ [Suspect]
     Active Substance: ADALIMUMAB-ADAZ
     Dosage: 40 MG, Q2W
  15. HYRIMOZ [Suspect]
     Active Substance: ADALIMUMAB-ADAZ
     Dosage: UNK
  16. DICLOFENAC SODIUM [Suspect]
     Active Substance: DICLOFENAC SODIUM
     Indication: Rheumatoid arthritis
     Dosage: 50 MG (SOLUTION OPHTHALMIC)
     Route: 047
  17. DICLOFENAC SODIUM [Suspect]
     Active Substance: DICLOFENAC SODIUM
     Dosage: 50 MG , ROUTE: OPHTHALMIC
     Route: 047
  18. DICLOFENAC SODIUM [Suspect]
     Active Substance: DICLOFENAC SODIUM
     Dosage: UNK
  19. RITUXIMAB [Suspect]
     Active Substance: RITUXIMAB
     Indication: Rheumatoid arthritis
     Dosage: UNK
  20. RITUXIMAB [Suspect]
     Active Substance: RITUXIMAB
     Dosage: UNK
  21. RITUXIMAB [Suspect]
     Active Substance: RITUXIMAB
     Dosage: UNK
  22. RITUXIMAB [Suspect]
     Active Substance: RITUXIMAB
     Dosage: UNK
  23. RITUXIMAB [Suspect]
     Active Substance: RITUXIMAB
     Dosage: UNK
  24. RITUXIMAB [Suspect]
     Active Substance: RITUXIMAB
     Dosage: UNK
  25. RITUXIMAB [Suspect]
     Active Substance: RITUXIMAB
     Dosage: UNK
  26. RITUXIMAB [Suspect]
     Active Substance: RITUXIMAB
     Dosage: 350 MG
  27. RITUXIMAB [Suspect]
     Active Substance: RITUXIMAB
     Dosage: UNK
  28. RITUXIMAB [Suspect]
     Active Substance: RITUXIMAB
     Dosage: UNK (DOSE FORM: INTRAVENOUS DRIP
  29. RITUXIMAB [Suspect]
     Active Substance: RITUXIMAB
     Dosage: UNK
  30. MYCOPHENOLATE MOFETIL [Suspect]
     Active Substance: MYCOPHENOLATE MOFETIL
     Indication: Product used for unknown indication
     Dosage: UNK
  31. LEFLUNOMIDE [Suspect]
     Active Substance: LEFLUNOMIDE
     Indication: Rheumatoid arthritis
     Dosage: UNK
  32. LEFLUNOMIDE [Suspect]
     Active Substance: LEFLUNOMIDE
     Dosage: UNK
  33. LEFLUNOMIDE [Suspect]
     Active Substance: LEFLUNOMIDE
     Dosage: 20 MG
  34. LEFLUNOMIDE [Suspect]
     Active Substance: LEFLUNOMIDE
     Dosage: 20 MG, QD
  35. LEFLUNOMIDE [Suspect]
     Active Substance: LEFLUNOMIDE
     Dosage: 10 MG
  36. LEFLUNOMIDE [Suspect]
     Active Substance: LEFLUNOMIDE
     Dosage: 10 DOSAGE FORM
  37. LEFLUNOMIDE [Suspect]
     Active Substance: LEFLUNOMIDE
     Dosage: 10 UNK, QD (TABLET)
  38. OXYCODONE [Suspect]
     Active Substance: OXYCODONE
     Indication: Product used for unknown indication
     Dosage: UNK (HYDROCHLORIDE)
  39. OXYCODONE [Suspect]
     Active Substance: OXYCODONE
     Dosage: UNK
  40. OXYCODONE [Suspect]
     Active Substance: OXYCODONE
     Dosage: UNK
  41. OXYCODONE [Suspect]
     Active Substance: OXYCODONE
     Dosage: UNK
  42. OXYCODONE [Suspect]
     Active Substance: OXYCODONE
     Dosage: UNK (TEREPHTHALATE)
  43. METHOTREXATE [Suspect]
     Active Substance: METHOTREXATE
     Indication: Product used for unknown indication
     Dosage: 20 MG, QD
  44. METHOTREXATE [Suspect]
     Active Substance: METHOTREXATE
     Dosage: 25 MG, QW
  45. METHOTREXATE [Suspect]
     Active Substance: METHOTREXATE
     Dosage: UNK
  46. METHOTREXATE [Suspect]
     Active Substance: METHOTREXATE
     Dosage: UNK
  47. METHOTREXATE [Suspect]
     Active Substance: METHOTREXATE
     Dosage: 25 MG
  48. METHOTREXATE [Suspect]
     Active Substance: METHOTREXATE
     Dosage: UNK
  49. METHOTREXATE [Suspect]
     Active Substance: METHOTREXATE
     Dosage: UNK
  50. METHOTREXATE [Suspect]
     Active Substance: METHOTREXATE
     Dosage: UNK
  51. METHOTREXATE [Suspect]
     Active Substance: METHOTREXATE
     Dosage: 25 MG
  52. METHOTREXATE [Suspect]
     Active Substance: METHOTREXATE
     Dosage: 1 G
  53. METHOTREXATE [Suspect]
     Active Substance: METHOTREXATE
     Dosage: UNK
  54. METHOTREXATE [Suspect]
     Active Substance: METHOTREXATE
     Dosage: 1 G
  55. METHOTREXATE [Suspect]
     Active Substance: METHOTREXATE
     Dosage: 200 MG
  56. METHOTREXATE [Suspect]
     Active Substance: METHOTREXATE
     Dosage: 2 DF
  57. METHOTREXATE [Suspect]
     Active Substance: METHOTREXATE
     Dosage: 20 MG, QW
  58. METHOTREXATE [Suspect]
     Active Substance: METHOTREXATE
     Dosage: 25 MG
  59. METHOTREXATE [Suspect]
     Active Substance: METHOTREXATE
     Dosage: 20 MG
  60. METHOTREXATE [Suspect]
     Active Substance: METHOTREXATE
     Dosage: 25 MG
  61. METHOTREXATE [Suspect]
     Active Substance: METHOTREXATE
     Dosage: 20 MG
  62. METHOTREXATE [Suspect]
     Active Substance: METHOTREXATE
     Dosage: UNK
  63. METHOTREXATE [Suspect]
     Active Substance: METHOTREXATE
     Dosage: 25 MG
  64. METHOTREXATE [Suspect]
     Active Substance: METHOTREXATE
     Dosage: 1 G
  65. METHOTREXATE [Suspect]
     Active Substance: METHOTREXATE
     Dosage: 25 MG
  66. METHOTREXATE [Suspect]
     Active Substance: METHOTREXATE
     Dosage: 20 MG
  67. METHOTREXATE [Suspect]
     Active Substance: METHOTREXATE
     Dosage: 15 MG
  68. METHOTREXATE [Suspect]
     Active Substance: METHOTREXATE
     Dosage: 20 MG, QW
  69. METHOTREXATE [Suspect]
     Active Substance: METHOTREXATE
     Dosage: 25 MG, QD
  70. METHOTREXATE [Suspect]
     Active Substance: METHOTREXATE
     Dosage: 15 MG, QD
  71. METHOTREXATE [Suspect]
     Active Substance: METHOTREXATE
     Dosage: 40 MG, QD
  72. METHOTREXATE [Suspect]
     Active Substance: METHOTREXATE
     Dosage: 50 MG, QD
  73. METHOTREXATE [Suspect]
     Active Substance: METHOTREXATE
     Dosage: 225 MG, QD
  74. METHOTREXATE [Suspect]
     Active Substance: METHOTREXATE
     Dosage: 2 G, QD
  75. METHOTREXATE [Suspect]
     Active Substance: METHOTREXATE
     Dosage: 2 G, QD
  76. METHOTREXATE [Suspect]
     Active Substance: METHOTREXATE
     Dosage: 25 MG, QW
  77. METHOTREXATE [Suspect]
     Active Substance: METHOTREXATE
     Dosage: 20 MG, QW
  78. METHOTREXATE [Suspect]
     Active Substance: METHOTREXATE
     Dosage: 25 MG, QW (SOLUTION  INTRAARTERIAL)
  79. METHOTREXATE [Suspect]
     Active Substance: METHOTREXATE
     Dosage: UNK
  80. VOLTAREN [Suspect]
     Active Substance: DICLOFENAC SODIUM
     Indication: Product used for unknown indication
     Dosage: 50 MG
  81. ERENUMAB [Suspect]
     Active Substance: ERENUMAB
     Indication: Migraine
     Dosage: UNK
  82. ERENUMAB [Suspect]
     Active Substance: ERENUMAB
     Dosage: UNK
  83. AIMOVIG [Suspect]
     Active Substance: ERENUMAB-AOOE
     Indication: Migraine
     Dosage: UNK (DOSE FORM: SOLUTION)
  84. AIMOVIG [Suspect]
     Active Substance: ERENUMAB-AOOE
     Dosage: UNK DOSE FORM: SOLUTION FOR INJECTION)
  85. COSENTYX [Suspect]
     Active Substance: SECUKINUMAB
     Indication: Psoriatic arthropathy
     Dosage: SOLUTION FOR INJECTION
  86. COSENTYX [Suspect]
     Active Substance: SECUKINUMAB
     Dosage: SOLUTION FOR INJECTION
  87. TRIAMCINOLONE ACETONIDE [Suspect]
     Active Substance: TRIAMCINOLONE ACETONIDE
     Indication: Rheumatoid arthritis
     Dosage: UNK (SUSPENSION INTRA  ARTICULAR)

REACTIONS (31)
  - Pulmonary fibrosis [Fatal]
  - Breast cancer stage II [Fatal]
  - Adjustment disorder with depressed mood [Fatal]
  - Alopecia [Fatal]
  - Amnesia [Fatal]
  - Anti-cyclic citrullinated peptide antibody positive [Fatal]
  - Arthralgia [Fatal]
  - Arthropathy [Fatal]
  - Back disorder [Fatal]
  - Bone erosion [Fatal]
  - Breast cancer stage III [Fatal]
  - C-reactive protein abnormal [Fatal]
  - Chest pain [Fatal]
  - Contusion [Fatal]
  - Decreased appetite [Fatal]
  - Delirium [Fatal]
  - Drug hypersensitivity [Fatal]
  - Fibromyalgia [Fatal]
  - Infusion related reaction [Fatal]
  - Liver disorder [Fatal]
  - Liver injury [Fatal]
  - Lower respiratory tract infection [Fatal]
  - Lung disorder [Fatal]
  - Malaise [Fatal]
  - Memory impairment [Fatal]
  - Musculoskeletal pain [Fatal]
  - Nausea [Fatal]
  - Oedema [Fatal]
  - Drug intolerance [Fatal]
  - Condition aggravated [Fatal]
  - Off label use [Fatal]
